FAERS Safety Report 8284253-8 (Version None)
Quarter: 2012Q2

REPORT INFORMATION
  Report Type: 
  Country: None (occurrence: None)
  Receive Date: 20120413
  Receipt Date: 20111103
  Transmission Date: 20120825
  Serious: No
  Sender: FDA-Public Use
  Company Number: US-ASTRAZENECA-2011SE63378

PATIENT
  Sex: Female
  Weight: 52.6 kg

DRUGS (3)
  1. NEXIUM [Suspect]
     Indication: GASTRITIS
     Route: 048
     Dates: start: 20070101
  2. ZANTAC [Concomitant]
     Route: 048
  3. NEXIUM [Suspect]
     Route: 048
     Dates: start: 20111001

REACTIONS (5)
  - WEIGHT DECREASED [None]
  - HEPATITIS [None]
  - CONSTIPATION [None]
  - DRUG INEFFECTIVE FOR UNAPPROVED INDICATION [None]
  - OFF LABEL USE [None]
